FAERS Safety Report 21463815 (Version 1)
Quarter: 2022Q4

REPORT INFORMATION
  Report Type: Spontaneous
  Country: US (occurrence: US)
  Receive Date: 20221017
  Receipt Date: 20221017
  Transmission Date: 20230112
  Serious: No
  Sender: FDA-Public Use
  Company Number: US-NOVAST LABORATORIES INC.-2022NOV000279

PATIENT

DRUGS (1)
  1. NIFEDIPINE [Suspect]
     Active Substance: NIFEDIPINE
     Indication: Hypertension
     Dosage: UNK
     Route: 065

REACTIONS (6)
  - Feeling abnormal [Recovered/Resolved]
  - Heart rate increased [Recovered/Resolved]
  - Asthenia [Recovered/Resolved]
  - Paraesthesia [Recovered/Resolved]
  - Flushing [Recovered/Resolved]
  - Sinus tachycardia [Recovered/Resolved]
